FAERS Safety Report 13413456 (Version 5)
Quarter: 2018Q2

REPORT INFORMATION
  Report Type: Report from Study
  Country: CR (occurrence: CR)
  Receive Date: 20170407
  Receipt Date: 20180503
  Transmission Date: 20180711
  Serious: Yes (Other)
  Sender: FDA-Public Use
  Company Number: PHHY2017CR050195

PATIENT
  Age: 54 Year
  Sex: Female
  Weight: 84 kg

DRUGS (4)
  1. SANDOSTATIN LAR DEPOT [Suspect]
     Active Substance: OCTREOTIDE ACETATE
     Indication: ACROMEGALY
     Dosage: 20 MG, QMO (EVERY MONTH)
     Route: 030
  2. HYDROCORTISONE. [Concomitant]
     Active Substance: HYDROCORTISONE
     Indication: PRODUCT USED FOR UNKNOWN INDICATION
     Route: 048
  3. FAMOTIDINE. [Concomitant]
     Active Substance: FAMOTIDINE
     Indication: PRODUCT USED FOR UNKNOWN INDICATION
     Dosage: 1 DF, QD
     Route: 048
  4. FLUOXETINE [Concomitant]
     Active Substance: FLUOXETINE HYDROCHLORIDE
     Indication: PRODUCT USED FOR UNKNOWN INDICATION
     Dosage: 2 DF, QD
     Route: 048

REACTIONS (18)
  - Chest discomfort [Unknown]
  - Headache [Unknown]
  - Angina pectoris [Recovered/Resolved]
  - Blindness [Recovering/Resolving]
  - Sleep apnoea syndrome [Unknown]
  - Insomnia [Unknown]
  - Flatulence [Unknown]
  - Brain neoplasm [Unknown]
  - Blood pressure increased [Unknown]
  - Fatigue [Unknown]
  - Nausea [Unknown]
  - Vision blurred [Recovering/Resolving]
  - Anaesthetic complication [Unknown]
  - Dyspepsia [Unknown]
  - Chest pain [Unknown]
  - Haemorrhage [Unknown]
  - Hyperhidrosis [Unknown]
  - Arterial disorder [Unknown]

NARRATIVE: CASE EVENT DATE: 201701
